FAERS Safety Report 9726159 (Version 1)
Quarter: 2013Q4

REPORT INFORMATION
  Report Type: Spontaneous
  Country: US (occurrence: None)
  Receive Date: 20131202
  Receipt Date: 20131202
  Transmission Date: 20140711
  Serious: No
  Sender: FDA-Public Use
  Company Number: None

PATIENT
  Age: 66 Year
  Sex: Male

DRUGS (1)
  1. PRIMIDONE [Suspect]
     Indication: TREMOR
     Route: 048
     Dates: start: 20130821, end: 20131127

REACTIONS (2)
  - Angioedema [None]
  - Rash [None]
